FAERS Safety Report 5160215-4 (Version None)
Quarter: 2006Q4

REPORT INFORMATION
  Report Type: 
  Country: None (occurrence: None)
  Receive Date: 20061120
  Receipt Date: 20061108
  Transmission Date: 20070319
  Serious: Yes (Death)
  Sender: FDA-Public Use
  Company Number: HQWYE046313OCT06

PATIENT
  Age: 46 Year
  Sex: Male
  Weight: 217.92 kg

DRUGS (8)
  1. TYGACIL [Suspect]
     Dosage: 100 MG LOAD, THEN 50 MG EVERY 12 HOURS, INTRAVENOUS
     Route: 042
     Dates: start: 20061010, end: 20061010
  2. LEVOPHED [Concomitant]
  3. CIPRO [Concomitant]
  4. CEFEPIME [Concomitant]
  5. VANCOMYCIN [Concomitant]
  6. ZOSYN [Concomitant]
  7. PROTONIX [Concomitant]
  8. LASIX [Concomitant]

REACTIONS (17)
  - ATRIAL SEPTAL DEFECT [None]
  - CARDIAC ARREST [None]
  - CARDIOPULMONARY FAILURE [None]
  - DIFFUSE ALVEOLAR DAMAGE [None]
  - HEPATOMEGALY [None]
  - HYPERPYREXIA [None]
  - OEDEMA PERIPHERAL [None]
  - PICKWICKIAN SYNDROME [None]
  - PULMONARY HYPERTENSION [None]
  - RENAL FAILURE ACUTE [None]
  - RHABDOMYOLYSIS [None]
  - SEPSIS [None]
  - SHOCK [None]
  - SLEEP APNOEA SYNDROME [None]
  - SPLENIC INFARCTION [None]
  - SPLENOMEGALY [None]
  - VEIN DISORDER [None]
